FAERS Safety Report 9783030 (Version 2)
Quarter: 2014Q2

REPORT INFORMATION
  Report Type: Report from Study
  Country: CN (occurrence: CN)
  Receive Date: 20131226
  Receipt Date: 20140401
  Transmission Date: 20141212
  Serious: Yes (Hospitalization, Other)
  Sender: FDA-Public Use
  Company Number: CN-ASTELLAS-2013US013383

PATIENT
  Age: 62 Year
  Sex: Female

DRUGS (1)
  1. ERLOTINIB TABLET [Suspect]
     Indication: NON-SMALL CELL LUNG CANCER
     Dosage: 150 MG, UID/QD
     Route: 048
     Dates: start: 20100416

REACTIONS (4)
  - Coma [Unknown]
  - Gait disturbance [Unknown]
  - Hypoaesthesia [Unknown]
  - Metastases to bone [Unknown]
